FAERS Safety Report 8791631 (Version 1)
Quarter: 2012Q4

REPORT INFORMATION
  Report Type: 
  Country: CA (occurrence: CA)
  Receive Date: 20120918
  Receipt Date: 20120918
  Transmission Date: 20130627
  Serious: Yes (Death)
  Sender: FDA-Public Use
  Company Number: CA-PFIZER INC-2012227191

PATIENT
  Age: 63 Year
  Sex: Female

DRUGS (9)
  1. DIAZEPAM [Suspect]
  2. NORVASC [Suspect]
     Route: 048
  3. PROPANOLOL HCL [Suspect]
     Route: 048
  4. CITALOPRAM HYDROBROMIDE [Suspect]
  5. TOPIRAMATE [Suspect]
     Route: 048
  6. ACETAMINOPHEN [Suspect]
     Route: 048
  7. CODEINE [Suspect]
     Route: 048
  8. CYCLOBENZAPRINE [Suspect]
     Route: 048
  9. NAPROXEN [Suspect]
     Route: 048

REACTIONS (1)
  - Completed suicide [Fatal]
